FAERS Safety Report 8963714 (Version 2)
Quarter: 2013Q2

REPORT INFORMATION
  Report Type: Spontaneous
  Country: US (occurrence: US)
  Receive Date: 20121214
  Receipt Date: 20130401
  Transmission Date: 20140414
  Serious: Yes (Hospitalization)
  Sender: FDA-Public Use
  Company Number: US-BAYER-2012-130347

PATIENT
  Age: 22 Year
  Sex: Female
  Weight: 158.73 kg

DRUGS (5)
  1. YAZ [Suspect]
     Dosage: UNK
     Dates: start: 2009
  2. VENTOLIN [Concomitant]
     Indication: ASTHMA
     Dosage: UNK
     Dates: start: 2006
  3. TEKTURNA [Concomitant]
     Indication: HYPERTENSION
     Dosage: 300/125 MG QD
  4. EXFORGE [Concomitant]
     Dosage: 10/320 QD
  5. SYMBICORT [Concomitant]
     Dosage: 160/ 4.25 PUFF BID

REACTIONS (4)
  - Deep vein thrombosis [None]
  - Injury [None]
  - Pain in extremity [None]
  - Gait disturbance [None]
